FAERS Safety Report 8940472 (Version 1)
Quarter: 2012Q4

REPORT INFORMATION
  Report Type: 
  Country: US (occurrence: US)
  Receive Date: 20121121
  Receipt Date: 20121121
  Transmission Date: 20130627
  Serious: Yes (Death)
  Sender: FDA-Public Use
  Company Number: US-ASTELLAS-1107374

PATIENT
  Sex: Male

DRUGS (5)
  1. TARCEVA [Suspect]
     Indication: PANCREATIC CARCINOMA
     Dosage: daily
     Route: 048
     Dates: start: 20080426, end: 20080825
  2. COMPAZINE [Concomitant]
  3. MORPHINE [Concomitant]
  4. HYDROCODONE [Concomitant]
  5. PRILOSEC [Concomitant]

REACTIONS (1)
  - Malignant neoplasm progression [Fatal]
